FAERS Safety Report 25952069 (Version 1)
Quarter: 2025Q4

REPORT INFORMATION
  Report Type: Spontaneous
  Country: US (occurrence: None)
  Receive Date: 20251022
  Receipt Date: 20251022
  Transmission Date: 20260117
  Serious: Yes (Hospitalization)
  Sender: FDA-CTU
  Company Number: None

PATIENT
  Age: 51 Year
  Sex: Male

DRUGS (19)
  1. AMBRISENTAN [Suspect]
     Active Substance: AMBRISENTAN
     Indication: Pulmonary arterial hypertension
     Dosage: FREQUENCY : DAILY;?
     Route: 048
     Dates: start: 20250825, end: 20250922
  2. SILDENAFIL [Concomitant]
     Active Substance: SILDENAFIL
  3. LORAZEPAM [Concomitant]
     Active Substance: LORAZEPAM
  4. MS CONTIN [Concomitant]
     Active Substance: MORPHINE SULFATE
  5. firaximin [Concomitant]
  6. Insulin Glargine insulin pen [Concomitant]
  7. VICTOZA [Concomitant]
     Active Substance: LIRAGLUTIDE
  8. HUMALOG KWIKPEN [Concomitant]
     Active Substance: INSULIN LISPRO
  9. TORSEMIDE [Concomitant]
     Active Substance: TORSEMIDE
  10. MAGNESIUM OXIDE [Concomitant]
     Active Substance: MAGNESIUM OXIDE
  11. OXYBUTYNIN [Concomitant]
     Active Substance: OXYBUTYNIN
  12. POTASSIUM CHLORIDE [Concomitant]
     Active Substance: POTASSIUM CHLORIDE
  13. OXYCODONE [Concomitant]
     Active Substance: OXYCODONE
  14. LACTULOSE [Concomitant]
     Active Substance: LACTULOSE
  15. CARVEDILOL [Concomitant]
     Active Substance: CARVEDILOL
  16. EPLERENONE [Concomitant]
     Active Substance: EPLERENONE
  17. LIDOCAINE PATCH [Concomitant]
     Active Substance: LIDOCAINE
  18. KETOCONAZOLE [Concomitant]
     Active Substance: KETOCONAZOLE
  19. NARCAN [Concomitant]
     Active Substance: NALOXONE HYDROCHLORIDE

REACTIONS (6)
  - Oedema [None]
  - Oedema [None]
  - Blood creatinine increased [None]
  - Hypokalaemia [None]
  - Hepatic encephalopathy [None]
  - Hypervolaemia [None]

NARRATIVE: CASE EVENT DATE: 20250907
